FAERS Safety Report 23468651 (Version 1)
Quarter: 2024Q1

REPORT INFORMATION
  Report Type: Spontaneous
  Country: US (occurrence: US)
  Receive Date: 20240202
  Receipt Date: 20240202
  Transmission Date: 20240409
  Serious: No
  Sender: FDA-Public Use
  Company Number: US-ABBVIE-5608143

PATIENT
  Sex: Female

DRUGS (1)
  1. REFRESH RELIEVA PF [Suspect]
     Active Substance: CARBOXYMETHYLCELLULOSE SODIUM\GLYCERIN
     Indication: Dry eye
     Route: 047
     Dates: start: 2022

REACTIONS (4)
  - Vision blurred [Unknown]
  - Eye disorder [Unknown]
  - Eye irritation [Unknown]
  - Diplopia [Unknown]
